FAERS Safety Report 9473455 (Version 2)
Quarter: 2014Q3

REPORT INFORMATION
  Report Type: Spontaneous
  Country: US (occurrence: US)
  Receive Date: 20130823
  Receipt Date: 20140808
  Transmission Date: 20150326
  Serious: Yes (Other)
  Sender: FDA-Public Use
  Company Number: US-BRISTOL-MYERS SQUIBB COMPANY-19006758

PATIENT
  Age: 79 Year
  Sex: Male
  Weight: 76.19 kg

DRUGS (12)
  1. TASIGNA [Suspect]
     Active Substance: NILOTINIB
  2. LOVASTATIN. [Concomitant]
     Active Substance: LOVASTATIN
     Dosage: 0.5MG
  3. VITAMIN D3 [Concomitant]
     Active Substance: CHOLECALCIFEROL
  4. ZOLPIDEM [Concomitant]
     Active Substance: ZOLPIDEM\ZOLPIDEM TARTRATE
  5. SPRYCEL [Suspect]
     Active Substance: DASATINIB
     Indication: CHRONIC MYELOID LEUKAEMIA
     Dosage: TABS, CURRENTLY 20 MG
     Route: 048
  6. SULINDAC. [Concomitant]
     Active Substance: SULINDAC
     Indication: GOUT
     Dosage: 200MG
  7. DILTIAZEM HYDROCHLORIDE EXTENDED RELEASE [Concomitant]
     Active Substance: DILTIAZEM HYDROCHLORIDE
  8. FUROSEMIDE. [Concomitant]
     Active Substance: FUROSEMIDE
  9. POTASSIUM CHLORIDE. [Concomitant]
     Active Substance: POTASSIUM CHLORIDE
  10. OMEPRAZOLE. [Concomitant]
     Active Substance: OMEPRAZOLE
  11. ALLOPURINOL. [Concomitant]
     Active Substance: ALLOPURINOL
  12. QUININE SULFATE. [Concomitant]
     Active Substance: QUININE SULFATE

REACTIONS (4)
  - Oedema peripheral [Unknown]
  - Pleural effusion [Unknown]
  - Swelling [Unknown]
  - Dental caries [Unknown]
